FAERS Safety Report 4502031-X (Version None)
Quarter: 2004Q4

REPORT INFORMATION
  Report Type: 
  Country: None (occurrence: None)
  Receive Date: 20041109
  Receipt Date: 20041022
  Transmission Date: 20050328
  Serious: Yes (Hospitalization)
  Sender: FDA-Public Use
  Company Number: DSA_25239_2004

PATIENT
  Sex: Male

DRUGS (4)
  1. TEVETEN [Suspect]
     Indication: HYPERTENSION
     Dosage: 600 MG Q DAY PO
     Route: 048
     Dates: end: 20040711
  2. FELODIPINE [Suspect]
     Indication: ILL-DEFINED DISORDER
     Dosage: DF
  3. RAMIPRIL [Suspect]
     Indication: ILL-DEFINED DISORDER
     Dosage: DF
  4. MOLSIDOMIN [Suspect]
     Indication: ILL-DEFINED DISORDER
     Dosage: DF

REACTIONS (7)
  - BUNDLE BRANCH BLOCK LEFT [None]
  - DIZZINESS [None]
  - DYSPNOEA [None]
  - FLUID INTAKE REDUCED [None]
  - HYPERHIDROSIS [None]
  - HYPOTENSION [None]
  - SINUS BRADYCARDIA [None]
